FAERS Safety Report 10185529 (Version 1)
Quarter: 2014Q2

REPORT INFORMATION
  Report Type: Spontaneous
  Country: CH (occurrence: CH)
  Receive Date: 20140521
  Receipt Date: 20140521
  Transmission Date: 20141212
  Serious: Yes (Hospitalization)
  Sender: FDA-Public Use
  Company Number: CH-SA-2014SA060632

PATIENT
  Age: 89 Year
  Sex: Male

DRUGS (11)
  1. COAPROVEL [Suspect]
     Indication: CARDIAC FAILURE
     Dosage: STRENGTH: IRBESARTAN- 300 MG AND HYDROCHLORTHIAZIDE- 25 MG
     Route: 048
  2. LASIX [Suspect]
     Indication: CARDIAC FAILURE
     Route: 048
  3. TELFAST [Suspect]
     Indication: PRODUCT USED FOR UNKNOWN INDICATION
     Route: 048
  4. INDERAL [Suspect]
     Indication: ATRIAL FIBRILLATION
     Dosage: STRENGTH: 80 MG
     Route: 048
  5. COSOPT [Suspect]
     Indication: GLAUCOMA
     Dosage: FORM : DROPS
     Route: 047
  6. ALDACTONE [Suspect]
     Indication: CARDIAC FAILURE
     Route: 048
  7. SINTROM [Suspect]
     Indication: ATRIAL FIBRILLATION
     Route: 048
  8. SIMVASTATIN [Suspect]
     Indication: LIPIDS ABNORMAL
     Route: 048
  9. TROSPIUM CHLORIDE [Suspect]
     Indication: URINARY TRACT INFECTION
     Route: 048
  10. DICETEL [Concomitant]
     Route: 048
  11. CAMPHOR [Concomitant]
     Route: 048

REACTIONS (11)
  - Bradycardia [Recovered/Resolved]
  - Malaise [Recovered/Resolved]
  - Chest pain [Recovered/Resolved]
  - Dyspnoea [Recovered/Resolved]
  - Cardiac failure [Recovered/Resolved]
  - Gait disturbance [Not Recovered/Not Resolved]
  - Fall [Not Recovered/Not Resolved]
  - Cognitive disorder [Not Recovered/Not Resolved]
  - Hyponatraemia [Recovered/Resolved]
  - Hypotension [Recovered/Resolved]
  - Therapeutic response increased [Unknown]
